FAERS Safety Report 8560919-7 (Version None)
Quarter: 2012Q3

REPORT INFORMATION
  Report Type: 
  Country: None (occurrence: None)
  Receive Date: 20120802
  Receipt Date: 20120726
  Transmission Date: 20120928
  Serious: Yes (Other)
  Sender: FDA-Public Use
  Company Number: JP-VERTEX PHARMACEUTICALS INC.-AE-2012-007082

PATIENT
  Age: 64 Year
  Sex: Female

DRUGS (13)
  1. TELAVIC (TELAPREVIR) [Suspect]
     Route: 048
     Dates: start: 20120404, end: 20120417
  2. RIBAVIRIN [Concomitant]
     Route: 048
     Dates: start: 20120328, end: 20120403
  3. TELAVIC (TELAPREVIR) [Suspect]
     Route: 048
     Dates: start: 20120307, end: 20120320
  4. TELAVIC (TELAPREVIR) [Suspect]
     Indication: HEPATITIS C
     Route: 048
     Dates: start: 20120127, end: 20120228
  5. RIBAVIRIN [Concomitant]
     Route: 048
     Dates: start: 20120307, end: 20120313
  6. TELAVIC (TELAPREVIR) [Suspect]
     Route: 048
     Dates: start: 20120229, end: 20120306
  7. RIBAVIRIN [Concomitant]
     Route: 048
     Dates: start: 20120222, end: 20120306
  8. RIBAVIRIN [Concomitant]
     Indication: HEPATITIS C
     Route: 048
     Dates: start: 20120127, end: 20120221
  9. RIBAVIRIN [Concomitant]
     Route: 048
     Dates: start: 20120404, end: 20120508
  10. NEXIUM [Concomitant]
     Route: 048
     Dates: start: 20120209
  11. TELAVIC (TELAPREVIR) [Suspect]
     Route: 048
     Dates: start: 20120321, end: 20120403
  12. RIBAVIRIN [Concomitant]
     Route: 048
     Dates: start: 20120509
  13. PEGINTERFERON ALFA-2B [Concomitant]
     Indication: HEPATITIS C
     Route: 058
     Dates: start: 20120127

REACTIONS (8)
  - WHITE BLOOD CELL COUNT DECREASED [None]
  - MALAISE [None]
  - PLATELET COUNT DECREASED [None]
  - PRURITUS [None]
  - HYPERURICAEMIA [None]
  - INJECTION SITE REACTION [None]
  - HAEMOGLOBIN DECREASED [None]
  - PYREXIA [None]
